FAERS Safety Report 5858964-5 (Version None)
Quarter: 2008Q3

REPORT INFORMATION
  Report Type: 
  Country: None (occurrence: None)
  Receive Date: 20080826
  Receipt Date: 20080818
  Transmission Date: 20090109
  Serious: Yes (Other)
  Sender: FDA-Public Use
  Company Number: JP-JNJFOC-20080800760

PATIENT
  Sex: Female
  Weight: 58 kg

DRUGS (6)
  1. REMICADE [Suspect]
     Dosage: SECOND DOSE ADMINISTERED
     Route: 042
  2. REMICADE [Suspect]
     Indication: RHEUMATOID ARTHRITIS
     Dosage: FIRST DOSE ADMINISTERED
     Route: 042
  3. BRIMANI [Concomitant]
     Route: 048
  4. PREDNISOLONE [Concomitant]
     Route: 048
  5. PREDNISOLONE [Concomitant]
     Route: 048
  6. MUCOSTA [Concomitant]
     Route: 048

REACTIONS (3)
  - INFUSION RELATED REACTION [None]
  - MASKED FACIES [None]
  - VISUAL IMPAIRMENT [None]
